FAERS Safety Report 4463277-2 (Version None)
Quarter: 2004Q3

REPORT INFORMATION
  Report Type: 
  Country: None (occurrence: None)
  Receive Date: 20040930
  Receipt Date: 20040922
  Transmission Date: 20050211
  Serious: Yes (Life-Threatening, Hospitalization, Disabling)
  Sender: FDA-Public Use
  Company Number: DE-GLAXOSMITHKLINE-D0044772A

PATIENT
  Age: 56 Year
  Sex: Female
  Weight: 85 kg

DRUGS (2)
  1. ELMENDOS [Suspect]
     Indication: BIPOLAR DISORDER
     Dosage: 25MG PER DAY
     Route: 048
     Dates: start: 20040821, end: 20040922
  2. STANGYL [Concomitant]
     Indication: BIPOLAR DISORDER
     Dosage: 100MG AT NIGHT
     Route: 065

REACTIONS (4)
  - EYELID OEDEMA [None]
  - OEDEMA [None]
  - PAIN [None]
  - STATUS ASTHMATICUS [None]
